FAERS Safety Report 18601681 (Version 1)
Quarter: 2020Q4

REPORT INFORMATION
  Report Type: Spontaneous
  Country: FR (occurrence: FR)
  Receive Date: 20201210
  Receipt Date: 20201210
  Transmission Date: 20210114
  Serious: Yes (Life-Threatening, Other)
  Sender: FDA-Public Use
  Company Number: FR-MYLANLABS-2020M1100452

PATIENT
  Age: 76 Year
  Sex: Female
  Weight: 80 kg

DRUGS (12)
  1. KARDEGIC [Concomitant]
     Active Substance: ASPIRIN DL-LYSINE
     Dosage: UNK
  2. DAPTOMYCINE [Suspect]
     Active Substance: DAPTOMYCIN
     Indication: INFECTION
     Dosage: 700 MILLIGRAM, QD
     Route: 042
     Dates: start: 20200825, end: 20200907
  3. APROVEL [Concomitant]
     Active Substance: IRBESARTAN
     Dosage: UNK
  4. BISOPROLOL                         /00802602/ [Concomitant]
     Active Substance: BISOPROLOL
     Dosage: 2.5 MILLIGRAM
  5. AMLODIPINE [Concomitant]
     Active Substance: AMLODIPINE BESYLATE
     Dosage: 10 MICROCURIE
  6. TIMOFEROL [Concomitant]
     Active Substance: ASCORBIC ACID\FERROUS SULFATE
     Dosage: UNK
  7. CIPROFLOXACIN. [Suspect]
     Active Substance: CIPROFLOXACIN
     Indication: INFECTION
     Dosage: 1000 MILLIGRAM, QD
     Route: 042
     Dates: start: 20200827, end: 20200909
  8. CONTRAMAL [Concomitant]
     Active Substance: TRAMADOL HYDROCHLORIDE
     Dosage: UNK
  9. CALCIPARINE [Concomitant]
     Active Substance: HEPARIN CALCIUM
     Dosage: UNK
  10. DOLIPRANE [Concomitant]
     Active Substance: ACETAMINOPHEN
     Dosage: UNK
  11. CEFEPIME [Suspect]
     Active Substance: CEFEPIME HYDROCHLORIDE
     Indication: INFECTION
     Dosage: 2 GRAM, Q8H
     Route: 042
     Dates: start: 20200825, end: 20200909
  12. EUPANTOL [Concomitant]
     Active Substance: PANTOPRAZOLE SODIUM
     Dosage: UNK

REACTIONS (3)
  - Overdose [Recovered/Resolved]
  - Encephalopathy [Recovered/Resolved]
  - Acute kidney injury [Recovered/Resolved]

NARRATIVE: CASE EVENT DATE: 20200908
